FAERS Safety Report 21784624 (Version 1)
Quarter: 2022Q4

REPORT INFORMATION
  Report Type: Spontaneous
  Country: CN (occurrence: CN)
  Receive Date: 20221227
  Receipt Date: 20221227
  Transmission Date: 20230112
  Serious: Yes (Hospitalization, Other)
  Sender: FDA-Public Use
  Company Number: None

PATIENT
  Age: 67 Year
  Sex: Female
  Weight: 54 kg

DRUGS (5)
  1. MANNITOL [Suspect]
     Active Substance: MANNITOL
     Indication: Radius fracture
     Dosage: 100 MILLIGRAMS (MG), ONCE DAILY
     Route: 041
     Dates: start: 20221208, end: 20221214
  2. MANNITOL [Suspect]
     Active Substance: MANNITOL
     Indication: Oedema
  3. SODIUM CHLORIDE [Suspect]
     Active Substance: SODIUM CHLORIDE
     Indication: Medication dilution
     Dosage: 250 MILLILITERS (ML), QD
     Route: 041
     Dates: start: 20221208, end: 20221214
  4. IBUPROFEN [Suspect]
     Active Substance: IBUPROFEN
     Indication: Analgesic therapy
     Dosage: 0.8 GRAMS (G), ONCE DAILY, (MANUFACTURER: HANGZHOU MINSHENG PHARMACEUTICAL CO. LTD.)
     Route: 041
     Dates: start: 20221208, end: 20221214
  5. IBUPROFEN [Suspect]
     Active Substance: IBUPROFEN
     Indication: Wound complication

REACTIONS (6)
  - Papule [Recovering/Resolving]
  - Pruritus [Recovering/Resolving]
  - Decreased appetite [Unknown]
  - Discomfort [Unknown]
  - Nausea [Unknown]
  - Vomiting [Unknown]

NARRATIVE: CASE EVENT DATE: 20221212
